FAERS Safety Report 4371135-7 (Version None)
Quarter: 2004Q2

REPORT INFORMATION
  Report Type: 
  Country: None (occurrence: None)
  Receive Date: 20040601
  Receipt Date: 20040524
  Transmission Date: 20050107
  Serious: Yes (Hospitalization)
  Sender: FDA-Public Use
  Company Number: 2004-05-1860

PATIENT
  Age: 40 Year
  Sex: Male

DRUGS (2)
  1. RIBAVIRIN [Suspect]
     Indication: HEPATITIS C
     Dosage: ORAL
     Route: 048
     Dates: start: 20001107, end: 20010516
  2. INTERFERON INJECTABLE [Suspect]
     Indication: HEPATITIS C
     Dosage: SUBCUTANEOUS
     Route: 058
     Dates: start: 20001107, end: 20010516

REACTIONS (7)
  - BLOOD ALBUMIN DECREASED [None]
  - GENERALISED OEDEMA [None]
  - GLOMERULONEPHRITIS [None]
  - HEPATIC NECROSIS [None]
  - HEPATITIS C [None]
  - NEPHROTIC SYNDROME [None]
  - URINE ANALYSIS ABNORMAL [None]
